FAERS Safety Report 12781413 (Version 11)
Quarter: 2018Q2

REPORT INFORMATION
  Report Type: Report from Study
  Country: US (occurrence: US)
  Receive Date: 20160926
  Receipt Date: 20180512
  Transmission Date: 20180711
  Serious: Yes (Hospitalization, Other)
  Sender: FDA-Public Use
  Company Number: US-SA-2016SA175347

PATIENT
  Age: 49 Year
  Sex: Female

DRUGS (1)
  1. LEMTRADA [Suspect]
     Active Substance: ALEMTUZUMAB
     Indication: MULTIPLE SCLEROSIS
     Route: 041
     Dates: start: 20160801, end: 20160805

REACTIONS (16)
  - Contusion [Not Recovered/Not Resolved]
  - Dementia [Unknown]
  - Mobility decreased [Recovered/Resolved]
  - Incontinence [Not Recovered/Not Resolved]
  - Cerebral infarction [Unknown]
  - Dry skin [Not Recovered/Not Resolved]
  - Blood cholesterol increased [Recovered/Resolved]
  - Poor venous access [Not Recovered/Not Resolved]
  - Condition aggravated [Not Recovered/Not Resolved]
  - Erythema [Not Recovered/Not Resolved]
  - Nuclear magnetic resonance imaging [Unknown]
  - Seizure [Recovered/Resolved]
  - Ill-defined disorder [Unknown]
  - Drug monitoring procedure not performed [Unknown]
  - Decubitus ulcer [Recovering/Resolving]
  - General physical health deterioration [Not Recovered/Not Resolved]

NARRATIVE: CASE EVENT DATE: 201609
